FAERS Safety Report 26122430 (Version 1)
Quarter: 2025Q4

REPORT INFORMATION
  Report Type: Report from Study
  Country: US (occurrence: US)
  Receive Date: 20251204
  Receipt Date: 20251204
  Transmission Date: 20260118
  Serious: Yes (Hospitalization)
  Sender: SANDOZ
  Company Number: US-SANDOZ-SDZ2025US059951

PATIENT
  Age: 12 Year
  Sex: Female

DRUGS (1)
  1. OMNITROPE [Suspect]
     Active Substance: SOMATROPIN
     Indication: Craniopharyngioma
     Dosage: 2.5 MG, ALTERNATE DOSING AS WELL, ORDERED AS 4 DAYS A WEEK.
     Route: 058

REACTIONS (5)
  - Abdominal pain [Unknown]
  - Headache [Unknown]
  - Injection site pain [Unknown]
  - Product dose omission issue [Unknown]
  - Off label use [Unknown]

NARRATIVE: CASE EVENT DATE: 20251001
